FAERS Safety Report 10420993 (Version 1)
Quarter: 2014Q3

REPORT INFORMATION
  Report Type: Spontaneous
  Country: CN (occurrence: None)
  Receive Date: 20140828
  Receipt Date: 20140828
  Transmission Date: 20150326
  Serious: Yes (Hospitalization)
  Sender: FDA-Public Use
  Company Number: FK201403421

PATIENT
  Age: 62 Year
  Sex: Female

DRUGS (6)
  1. LEUCOGEN (LEUCOGEN) [Concomitant]
  2. REDUCED GLUTATHIONE (GLUTATHIONE) [Concomitant]
  3. CAPECITABINE (MANUFACTURER UNKNOWN) (CAPECITABINE) (CAPECITABINE) [Suspect]
     Active Substance: CAPECITABINE
     Indication: METASTASES TO LIVER
     Dosage: ON DAYS TWO TO 15, OF A 21 DAY
     Route: 048
     Dates: start: 20130515
  4. GEMCITABINE (MANUFACTURER UNKNOWN) (GEMCITABINE) (GEMCITABINE) [Suspect]
     Active Substance: GEMCITABINE HYDROCHLORIDE
     Indication: METASTASES TO LIVER
     Dosage: ON DAYS ONE AND EIGHT
     Route: 042
     Dates: start: 20130515
  5. GEMCITABINE (MANUFACTURER UNKNOWN) (GEMCITABINE) (GEMCITABINE) [Suspect]
     Active Substance: GEMCITABINE HYDROCHLORIDE
     Indication: PANCREATIC CARCINOMA
     Dosage: ON DAYS ONE AND EIGHT
     Route: 042
     Dates: start: 20130515
  6. CAPECITABINE (MANUFACTURER UNKNOWN) (CAPECITABINE) (CAPECITABINE) [Suspect]
     Active Substance: CAPECITABINE
     Indication: PANCREATIC CARCINOMA
     Dosage: ON DAYS TWO TO 15, OF A 21 DAY
     Route: 048
     Dates: start: 20130515

REACTIONS (9)
  - Heart rate increased [None]
  - Renal failure acute [None]
  - Confusional state [None]
  - Gait disturbance [None]
  - Blood pressure decreased [None]
  - Pancreatitis acute [None]
  - Asthenia [None]
  - Infection [None]
  - Ascites [None]
